FAERS Safety Report 6148812-0 (Version None)
Quarter: 2009Q2

REPORT INFORMATION
  Report Type: 
  Country: None (occurrence: None)
  Receive Date: 20090406
  Receipt Date: 20090323
  Transmission Date: 20091009
  Serious: Yes (Hospitalization)
  Sender: FDA-Public Use
  Company Number: 1000005601

PATIENT
  Age: 51 Year
  Sex: Female
  Weight: 112 kg

DRUGS (10)
  1. CITALOPRAM HYDROBROMIDE [Suspect]
     Indication: DEPRESSION
     Dosage: 20 MG (20 MG, 1 IN 1 D), ORAL
     Route: 048
     Dates: start: 20090217, end: 20090218
  2. CITALOPRAM HYDROBROMIDE [Suspect]
     Indication: DEPRESSION
     Dosage: 10 MG (10 MG, 1 IN 1 D), ORAL
     Route: 048
     Dates: start: 20090213, end: 20090216
  3. ADCORTYL [Concomitant]
  4. BECLOMETHASONE DIPROPIONATE [Concomitant]
  5. BENDROFLUMETHIAZIDE [Concomitant]
  6. DICLOFENAC SODIUM [Concomitant]
  7. IRBESARTAN [Concomitant]
  8. LIDOCAINE [Concomitant]
  9. OMEPRAZOLE [Concomitant]
  10. SALBUTAMOL [Concomitant]

REACTIONS (5)
  - HEADACHE [None]
  - MIDDLE INSOMNIA [None]
  - PAIN [None]
  - VISION BLURRED [None]
  - VOMITING [None]
